FAERS Safety Report 12861797 (Version 2)
Quarter: 2016Q4

REPORT INFORMATION
  Report Type: Spontaneous
  Country: KR (occurrence: KR)
  Receive Date: 20161019
  Receipt Date: 20161230
  Transmission Date: 20170207
  Serious: Yes (Hospitalization)
  Sender: FDA-Public Use
  Company Number: KR-009507513-1606KOR014438

PATIENT
  Age: 59 Year
  Sex: Male
  Weight: 90 kg

DRUGS (14)
  1. APROVEL [Concomitant]
     Active Substance: IRBESARTAN
     Indication: MYOCARDIAL INFARCTION
     Dosage: 75 MG, QD
     Route: 048
     Dates: start: 20130219
  2. NESINA [Concomitant]
     Active Substance: ALOGLIPTIN BENZOATE
     Indication: TYPE 2 DIABETES MELLITUS
     Dosage: 25 MG, QD
     Route: 048
     Dates: start: 20150727
  3. ATOZET [Suspect]
     Active Substance: ATORVASTATIN CALCIUM\EZETIMIBE
     Indication: PRIMARY HYPERCHOLESTEROLAEMIA
     Dosage: 1 TABLET, 1/DAY
     Route: 048
     Dates: start: 20160310
  4. NOVOMIX 30 [Concomitant]
     Active Substance: INSULIN ASPART
     Indication: TYPE 2 DIABETES MELLITUS
     Dosage: STRENGTH 100IU/ML; DOSE 42 IU, QD
     Route: 058
     Dates: start: 20150310
  5. LYRICA [Concomitant]
     Active Substance: PREGABALIN
     Indication: NEUROPATHY PERIPHERAL
  6. VASTINAN MR [Concomitant]
     Indication: MYOCARDIAL INFARCTION
     Dosage: 35 MG, QD
     Route: 048
     Dates: start: 20130806
  7. PLAVIX [Concomitant]
     Active Substance: CLOPIDOGREL BISULFATE
     Indication: THROMBOSIS PROPHYLAXIS
     Dosage: 75 MG, QD
     Route: 048
     Dates: start: 20150310
  8. BIO ASTRIX [Concomitant]
     Indication: THROMBOSIS PROPHYLAXIS
     Dosage: 100 MG, QD
     Route: 048
     Dates: start: 20150727
  9. LETOPRA [Concomitant]
     Indication: PROPHYLAXIS AGAINST GASTROINTESTINAL ULCER
     Dosage: 10 MG, QD
     Route: 048
     Dates: start: 20141125
  10. CONCOR [Concomitant]
     Active Substance: BISOPROLOL FUMARATE
     Indication: MYOCARDIAL INFARCTION
     Dosage: 1.25 MG, QD
     Route: 048
     Dates: start: 20130806
  11. NOVOMIX 30 [Concomitant]
     Active Substance: INSULIN ASPART
     Dosage: STRENGTH 100IU/ML; DOSE 35 IU, QD
     Route: 058
     Dates: start: 20151210
  12. METFORMIN HYDROCHLORIDE. [Concomitant]
     Active Substance: METFORMIN HYDROCHLORIDE
     Indication: TYPE 2 DIABETES MELLITUS
     Dosage: 500 MG, BID
     Route: 048
     Dates: start: 20160607
  13. LYRICA [Concomitant]
     Active Substance: PREGABALIN
     Indication: TYPE 1 DIABETES MELLITUS
     Dosage: 150 MG, BID
     Route: 048
     Dates: start: 20160607
  14. LEVOTENSION [Concomitant]
     Indication: ESSENTIAL HYPERTENSION
     Dosage: 1.25 MG, BID
     Route: 048
     Dates: start: 20160804, end: 20160805

REACTIONS (1)
  - Chest pain [Recovered/Resolved]

NARRATIVE: CASE EVENT DATE: 20160803
